FAERS Safety Report 20616069 (Version 1)
Quarter: 2022Q1

REPORT INFORMATION
  Report Type: Report from Study
  Country: FR (occurrence: FR)
  Receive Date: 20220321
  Receipt Date: 20220321
  Transmission Date: 20220423
  Serious: Yes (Other)
  Sender: FDA-Public Use
  Company Number: FR-TAKEDA-2022TUS016954

PATIENT
  Age: 13 Year
  Sex: Male

DRUGS (8)
  1. TEDUGLUTIDE [Suspect]
     Active Substance: TEDUGLUTIDE
     Indication: Short-bowel syndrome
     Dosage: 1.8 MILLIGRAM, QD
     Route: 065
     Dates: start: 20211102
  2. TEDUGLUTIDE [Suspect]
     Active Substance: TEDUGLUTIDE
     Indication: Short-bowel syndrome
     Dosage: 1.8 MILLIGRAM, QD
     Route: 065
     Dates: start: 20211102
  3. TEDUGLUTIDE [Suspect]
     Active Substance: TEDUGLUTIDE
     Indication: Short-bowel syndrome
     Dosage: 1.8 MILLIGRAM, QD
     Route: 065
     Dates: start: 20211102
  4. TEDUGLUTIDE [Suspect]
     Active Substance: TEDUGLUTIDE
     Indication: Short-bowel syndrome
     Dosage: 1.8 MILLIGRAM, QD
     Route: 065
     Dates: start: 20211102
  5. AUGMENTIN [Concomitant]
     Active Substance: AMOXICILLIN\CLAVULANATE POTASSIUM
     Indication: Pneumonia aspiration
     Dosage: 854.4 MILLIGRAM, TID
     Route: 048
     Dates: start: 20201225, end: 20201230
  6. AUGMENTIN [Concomitant]
     Active Substance: AMOXICILLIN\CLAVULANATE POTASSIUM
     Dosage: 100 MILLIGRAM/KILOGRAM, QD
     Route: 042
     Dates: start: 20201223, end: 20201225
  7. GENTAMICIN [Concomitant]
     Active Substance: GENTAMICIN
     Indication: Pneumonia aspiration
     Dosage: 5 MILLIGRAM/KILOGRAM, QD
     Route: 042
     Dates: start: 20201223, end: 20201225
  8. VANCOMYCIN [Concomitant]
     Active Substance: VANCOMYCIN
     Indication: Pneumonia aspiration
     Dosage: 50 MILLIGRAM/KILOGRAM, QID
     Route: 042
     Dates: start: 20201223, end: 20201225

REACTIONS (1)
  - Hepatic cytolysis [Not Recovered/Not Resolved]

NARRATIVE: CASE EVENT DATE: 20220201
